FAERS Safety Report 8444007-6 (Version None)
Quarter: 2012Q2

REPORT INFORMATION
  Report Type: 
  Country: None (occurrence: None)
  Receive Date: 20120618
  Receipt Date: 20120612
  Transmission Date: 20120825
  Serious: Yes (Death, Hospitalization, Other)
  Sender: FDA-Public Use
  Company Number: PHHY2012CA041029

PATIENT
  Sex: Female

DRUGS (1)
  1. SANDOSTATIN LAR [Suspect]
     Indication: ENDOMETRIAL NEOPLASM
     Dosage: 20 MG, EVERY 4 WEEKS
     Route: 030
     Dates: start: 20120418

REACTIONS (5)
  - MALAISE [None]
  - DEHYDRATION [None]
  - TERMINAL STATE [None]
  - NEOPLASM PROGRESSION [None]
  - NEOPLASM MALIGNANT [None]
